FAERS Safety Report 8581837-4 (Version None)
Quarter: 2012Q3

REPORT INFORMATION
  Report Type: 
  Country: None (occurrence: None)
  Receive Date: 20120809
  Receipt Date: 20120801
  Transmission Date: 20120928
  Serious: Yes (Other)
  Sender: FDA-Public Use
  Company Number: JP-VERTEX PHARMACEUTICALS INC.-AE-2012-011609

PATIENT
  Age: 63 Year
  Sex: Male

DRUGS (12)
  1. EPADEL [Concomitant]
     Route: 048
  2. L- CARTIN [Concomitant]
     Route: 048
  3. RIBAVIRIN [Concomitant]
     Route: 048
     Dates: start: 20120627, end: 20120709
  4. RIKKUNSHITO [Concomitant]
     Route: 048
  5. PEGINTERFERON ALFA-2B [Concomitant]
     Route: 058
     Dates: start: 20120627
  6. LORFENAMIN [Concomitant]
     Route: 048
  7. RIBAVIRIN [Concomitant]
     Route: 048
     Dates: start: 20120710
  8. DOGMATYL [Concomitant]
  9. TELAVIC (TELAPREVIR) [Suspect]
     Indication: HEPATITIS C
     Route: 048
     Dates: start: 20120529, end: 20120608
  10. RIBAVIRIN [Concomitant]
     Indication: HEPATITIS C
     Route: 048
     Dates: start: 20120529, end: 20120626
  11. MOTILIUM [Concomitant]
  12. PEGINTERFERON ALFA-2B [Concomitant]
     Route: 058
     Dates: start: 20120529, end: 20120626

REACTIONS (3)
  - ANAEMIA [None]
  - DECREASED APPETITE [None]
  - RASH [None]
